FAERS Safety Report 5720663-8 (Version None)
Quarter: 2008Q2

REPORT INFORMATION
  Report Type: 
  Country: None (occurrence: None)
  Receive Date: 20080429
  Receipt Date: 20080418
  Transmission Date: 20081010
  Serious: Yes (Hospitalization, Other)
  Sender: FDA-Public Use
  Company Number: US-JNJFOC-20080405463

PATIENT
  Sex: Female
  Weight: 43.5 kg

DRUGS (7)
  1. INFLIXIMAB [Suspect]
     Route: 042
  2. INFLIXIMAB [Suspect]
     Indication: COLITIS ULCERATIVE
     Route: 042
  3. PREDNISONE [Concomitant]
  4. PREDNISONE [Concomitant]
  5. PEPCID [Concomitant]
  6. ELAVIL [Concomitant]
  7. CORTENEMA [Concomitant]

REACTIONS (5)
  - ABDOMINAL PAIN [None]
  - COLECTOMY [None]
  - NAUSEA [None]
  - PYREXIA [None]
  - VOMITING [None]
